FAERS Safety Report 4939564-8 (Version None)
Quarter: 2006Q1

REPORT INFORMATION
  Report Type: 
  Country: None (occurrence: None)
  Receive Date: 20060310
  Receipt Date: 20060301
  Transmission Date: 20060701
  Serious: Yes (Other)
  Sender: FDA-Public Use
  Company Number: 2006UW03668

PATIENT
  Age: 46 Year
  Sex: Male
  Weight: 84 kg

DRUGS (1)
  1. ATACAND HCT [Suspect]
     Indication: BLOOD PRESSURE FLUCTUATION
     Route: 048
     Dates: start: 20050501

REACTIONS (13)
  - ABDOMINAL PAIN UPPER [None]
  - BACK PAIN [None]
  - DIZZINESS [None]
  - HEADACHE [None]
  - HYPERPLASIA [None]
  - LARYNX IRRITATION [None]
  - MALAISE [None]
  - MUSCLE SPASMS [None]
  - OESOPHAGITIS [None]
  - PHARYNGOLARYNGEAL PAIN [None]
  - SPEECH DISORDER [None]
  - THROAT IRRITATION [None]
  - TONSILLAR DISORDER [None]
